FAERS Safety Report 18117492 (Version 1)
Quarter: 2020Q3

REPORT INFORMATION
  Report Type: Spontaneous
  Country: US (occurrence: US)
  Receive Date: 20200805
  Receipt Date: 20200805
  Transmission Date: 20201103
  Serious: Yes (Death)
  Sender: FDA-Public Use
  Company Number: None

PATIENT
  Age: 64 Year
  Sex: Male
  Weight: 117 kg

DRUGS (22)
  1. ANBESOL REGULAR STRENGTH GEL [Concomitant]
     Active Substance: BENZOCAINE
  2. LISINOPRIL. [Concomitant]
     Active Substance: LISINOPRIL
  3. LORAZEPAM. [Concomitant]
     Active Substance: LORAZEPAM
  4. FOLIC ACID. [Concomitant]
     Active Substance: FOLIC ACID
  5. TASIGNA [Suspect]
     Active Substance: NILOTINIB
     Indication: CHRONIC MYELOID LEUKAEMIA
     Route: 048
     Dates: start: 20191218, end: 20200805
  6. DEPAKOTE ER [Concomitant]
     Active Substance: DIVALPROEX SODIUM
  7. HYDROCORTISONE. [Concomitant]
     Active Substance: HYDROCORTISONE
  8. LACTOBACILLUS [Concomitant]
     Active Substance: LACTOBACILLUS ACIDOPHILUS
  9. ASPIRIN ?LOW [Concomitant]
  10. LYRICA [Concomitant]
     Active Substance: PREGABALIN
  11. GLUTOSE 15 [Concomitant]
  12. IBUPROFEN. [Concomitant]
     Active Substance: IBUPROFEN
  13. IMITREX [Concomitant]
     Active Substance: SUMATRIPTAN SUCCINATE
  14. COPAXONE [Concomitant]
     Active Substance: GLATIRAMER ACETATE
  15. INVANZ [Concomitant]
     Active Substance: ERTAPENEM SODIUM
  16. IPRATROPIUM [Concomitant]
     Active Substance: IPRATROPIUM
  17. CYMBALTA [Concomitant]
     Active Substance: DULOXETINE HYDROCHLORIDE
  18. ALBUTEROL. [Concomitant]
     Active Substance: ALBUTEROL
  19. CALCIUM CARBONATE ANTACID [Concomitant]
  20. DYAZIDE [Concomitant]
     Active Substance: HYDROCHLOROTHIAZIDE\TRIAMTERENE
  21. BACLOFEN. [Concomitant]
     Active Substance: BACLOFEN
  22. BENGAY ULTRA STRENGTH [Concomitant]
     Active Substance: METHYL SALICYLATE

REACTIONS (1)
  - Death [None]

NARRATIVE: CASE EVENT DATE: 20200805
